FAERS Safety Report 8025415-4 (Version None)
Quarter: 2012Q1

REPORT INFORMATION
  Report Type: 
  Country: None (occurrence: None)
  Receive Date: 20120105
  Receipt Date: 20111219
  Transmission Date: 20120608
  Serious: Yes (Other)
  Sender: FDA-Public Use
  Company Number: CHPA2011US016021

PATIENT
  Age: 65 Year
  Sex: Male

DRUGS (2)
  1. LANTUS [Concomitant]
     Indication: BLOOD GLUCOSE INCREASED
     Dosage: 70 U, QD
  2. NICOTINE [Suspect]
     Indication: SMOKING CESSATION THERAPY
     Dosage: 21 MG, QD
     Route: 062
     Dates: start: 20111023

REACTIONS (6)
  - TREATMENT NONCOMPLIANCE [None]
  - APPLICATION SITE IRRITATION [None]
  - CONCOMITANT DISEASE AGGRAVATED [None]
  - OVERDOSE [None]
  - BLOOD GLUCOSE INCREASED [None]
  - ABNORMAL DREAMS [None]
